FAERS Safety Report 9283887 (Version 2)
Quarter: 2014Q4

REPORT INFORMATION
  Report Type: Spontaneous
  Country: GB (occurrence: GB)
  Receive Date: 20130510
  Receipt Date: 20141014
  Transmission Date: 20150529
  Serious: Yes (Hospitalization, Other)
  Sender: FDA-Public Use
  Company Number: PHHY2013GB044053

PATIENT
  Age: 24 Year
  Sex: Male

DRUGS (7)
  1. PHENOBARBITONE [Concomitant]
     Active Substance: PHENOBARBITAL
  2. VALPROIC ACID. [Suspect]
     Active Substance: VALPROIC ACID
     Indication: SEIZURE
  3. LACOSAMIDE [Concomitant]
     Active Substance: LACOSAMIDE
  4. LEVETIRACETAM. [Concomitant]
     Active Substance: LEVETIRACETAM
  5. CARBAMAZEPINE. [Concomitant]
     Active Substance: CARBAMAZEPINE
  6. BENZODIAZEPINES [Concomitant]
     Active Substance: BENZODIAZEPINE
  7. TOPIRAMATE. [Concomitant]
     Active Substance: TOPIRAMATE

REACTIONS (4)
  - Hyperammonaemic encephalopathy [Unknown]
  - Seizure [Not Recovered/Not Resolved]
  - Lennox-Gastaut syndrome [Unknown]
  - Drug ineffective [Unknown]
